FAERS Safety Report 7850630-X (Version None)
Quarter: 2011Q4

REPORT INFORMATION
  Report Type: 
  Country: None (occurrence: None)
  Receive Date: 20111024
  Receipt Date: 20111011
  Transmission Date: 20120403
  Serious: No
  Sender: FDA-Public Use
  Company Number: LEO-2011-00749

PATIENT
  Sex: Male

DRUGS (2)
  1. CHEMOTHERAPY (CHEM-   -  OTHERAPEUTICS) [Concomitant]
  2. INNOHEP [Suspect]
     Indication: PHLEBITIS
     Dosage: , SUBCUTANEOUS
     Route: 058

REACTIONS (3)
  - DISEASE RECURRENCE [None]
  - PHLEBITIS [None]
  - OFF LABEL USE [None]
